FAERS Safety Report 6669611-7 (Version None)
Quarter: 2010Q2

REPORT INFORMATION
  Report Type: 
  Country: None (occurrence: None)
  Receive Date: 20100406
  Receipt Date: 20100323
  Transmission Date: 20101027
  Serious: Yes (Other)
  Sender: FDA-Public Use
  Company Number: GB-MYLANLABS-2010S1004799

PATIENT
  Sex: Male

DRUGS (9)
  1. BISOPROLOL [Interacting]
     Indication: DRUG USE FOR UNKNOWN INDICATION
  2. DOXAZOSIN [Suspect]
     Indication: DRUG USE FOR UNKNOWN INDICATION
  3. RANITIDINE [Interacting]
     Indication: DRUG USE FOR UNKNOWN INDICATION
  4. BENDROFLUMETHIAZIDE [Interacting]
     Indication: DRUG USE FOR UNKNOWN INDICATION
  5. COLOFAC /00139402/ [Interacting]
     Indication: DEPRESSION
  6. EDRONAX [Interacting]
     Indication: DEPRESSION
     Dates: start: 20100223
  7. MOTILIUM [Interacting]
     Indication: DRUG USE FOR UNKNOWN INDICATION
  8. NEXIUM [Interacting]
     Indication: DRUG USE FOR UNKNOWN INDICATION
  9. ANAFRANIL [Concomitant]
     Indication: DRUG USE FOR UNKNOWN INDICATION
     Dosage: ADR HYPERSENSIVITY + OVERSEDATION

REACTIONS (3)
  - DRUG INTERACTION [None]
  - FATIGUE [None]
  - SEDATION [None]
